FAERS Safety Report 6437983-4 (Version None)
Quarter: 2009Q4

REPORT INFORMATION
  Report Type: 
  Country: None (occurrence: None)
  Receive Date: 20091112
  Receipt Date: 20091103
  Transmission Date: 20100525
  Serious: Yes (Death)
  Sender: FDA-Public Use
  Company Number: GXKR2009CN12086

PATIENT
  Age: 73 Year
  Sex: Male

DRUGS (1)
  1. ACETYLSALICYLIC ACID SRT [Suspect]
     Dosage: 80 MG/DAY
     Route: 065

REACTIONS (6)
  - COMA [None]
  - HAEMORRHAGE INTRACRANIAL [None]
  - LUNG INFECTION [None]
  - MULTI-ORGAN FAILURE [None]
  - SURGERY [None]
  - TRACHEOSTOMY [None]
